FAERS Safety Report 5497907-3 (Version None)
Quarter: 2007Q4

REPORT INFORMATION
  Report Type: 
  Country: None (occurrence: None)
  Receive Date: 20071025
  Receipt Date: 20071015
  Transmission Date: 20080405
  Serious: Yes (Hospitalization, Other)
  Sender: FDA-Public Use
  Company Number: US-ELI_LILLY_AND_COMPANY-US200709005905

PATIENT
  Sex: Female

DRUGS (4)
  1. FORTEO [Suspect]
     Indication: MUSCULOSKELETAL STIFFNESS
     Dosage: UNK, UNK
     Dates: start: 20030101
  2. FORTEO [Suspect]
     Dosage: UNK, UNK
     Dates: start: 20070101
  3. METHOTREXATE [Concomitant]
     Indication: RHEUMATOID ARTHRITIS
  4. ASPIRIN [Concomitant]

REACTIONS (6)
  - ARTHRITIS [None]
  - DIZZINESS [None]
  - EYE DISORDER [None]
  - EYE OPERATION COMPLICATION [None]
  - EYELID PTOSIS [None]
  - VISUAL ACUITY REDUCED [None]
